FAERS Safety Report 4288535-6 (Version None)
Quarter: 2004Q1

REPORT INFORMATION
  Report Type: 
  Country: None (occurrence: None)
  Receive Date: 20040205
  Receipt Date: 20040126
  Transmission Date: 20041129
  Serious: Yes (Hospitalization)
  Sender: FDA-Public Use
  Company Number: 2003184406GB

PATIENT
  Age: 67 Year
  Sex: Female
  Weight: 87 kg

DRUGS (5)
  1. EPIRUBICIN [Suspect]
     Indication: BREAST CANCER
     Dosage: 100 MG, CYCLE 3, IV
     Route: 042
     Dates: start: 20030815, end: 20031017
  2. SIMVASTATIN [Concomitant]
  3. IMAZIN [Concomitant]
  4. CETIRIZINE (CETIRIZINE) [Concomitant]
  5. CO-DYDRAMOL (DIHYDROCODEINE BITARTRATE) [Concomitant]

REACTIONS (10)
  - ANAEMIA [None]
  - ATRIAL FIBRILLATION [None]
  - CHILLS [None]
  - DYSPNOEA [None]
  - HYPERHIDROSIS [None]
  - LOWER RESPIRATORY TRACT INFECTION [None]
  - NEUTROPENIA [None]
  - PALPITATIONS [None]
  - PYREXIA [None]
  - WHITE BLOOD CELL COUNT DECREASED [None]
